FAERS Safety Report 9890911 (Version 1)
Quarter: 2014Q1

REPORT INFORMATION
  Report Type: Spontaneous
  Country: US (occurrence: None)
  Receive Date: 20140207
  Receipt Date: 20140207
  Transmission Date: 20141002
  Serious: Yes (Death)
  Sender: FDA-Public Use
  Company Number: UTC-044030

PATIENT
  Age: 82 Year
  Sex: Male
  Weight: 73.6 kg

DRUGS (3)
  1. REMODULIN [Suspect]
     Indication: COR PULMONALE CHRONIC
     Dosage: 72 UG/KG (0.05 UG/KG, 1 IIN 1 MIN), SUBCUTANEOUS
     Route: 058
     Dates: start: 20110314
  2. VIAGRA(SILDENAFIL) [Concomitant]
  3. WARFARIN (UNKNOWN)? [Concomitant]

REACTIONS (1)
  - Death [None]
